FAERS Safety Report 15778596 (Version 2)
Quarter: 2019Q1

REPORT INFORMATION
  Report Type: Spontaneous
  Country: JP (occurrence: JP)
  Receive Date: 20181231
  Receipt Date: 20190206
  Transmission Date: 20190417
  Serious: Yes (Death)
  Sender: FDA-Public Use
  Company Number: JP-MITSUBISHI TANABE PHARMA CORPORATION-MTPC2018-0034939

PATIENT
  Age: 64 Year
  Sex: Male

DRUGS (2)
  1. RILUTEK [Concomitant]
     Active Substance: RILUZOLE
     Route: 048
  2. RADICUT [Suspect]
     Active Substance: EDARAVONE
     Indication: AMYOTROPHIC LATERAL SCLEROSIS
     Route: 041
     Dates: start: 20181106, end: 20181116

REACTIONS (1)
  - Death [Fatal]

NARRATIVE: CASE EVENT DATE: 20181203
